FAERS Safety Report 13161270 (Version 1)
Quarter: 2017Q1

REPORT INFORMATION
  Report Type: Report from Study
  Country: CA (occurrence: CA)
  Receive Date: 20170130
  Receipt Date: 20170130
  Transmission Date: 20170428
  Serious: Yes (Hospitalization)
  Sender: FDA-Public Use
  Company Number: CA-TEVA-734886ACC

PATIENT
  Age: 44 Year
  Sex: Female

DRUGS (9)
  1. RAPAFLO [Concomitant]
     Active Substance: SILODOSIN
  2. MYRBETRIQ [Concomitant]
     Active Substance: MIRABEGRON
  3. ACTONEL [Concomitant]
     Active Substance: RISEDRONATE SODIUM
  4. COPAXONE [Suspect]
     Active Substance: GLATIRAMER ACETATE
     Indication: MULTIPLE SCLEROSIS
     Dosage: 20 MILLIGRAM/MILLILITERS DAILY;
     Route: 058
     Dates: start: 20161119
  5. AMINOPYRIDINE [Concomitant]
     Active Substance: DALFAMPRIDINE
  6. MULTIVITAMIN [Concomitant]
     Active Substance: VITAMINS
  7. VITAMIN D [Concomitant]
     Active Substance: CHOLECALCIFEROL
  8. GABAPENTIN. [Concomitant]
     Active Substance: GABAPENTIN
  9. VESICARE [Concomitant]
     Active Substance: SOLIFENACIN SUCCINATE

REACTIONS (1)
  - Gallbladder disorder [Unknown]

NARRATIVE: CASE EVENT DATE: 20170122
